FAERS Safety Report 6764212-4 (Version None)
Quarter: 2010Q2

REPORT INFORMATION
  Report Type: 
  Country: None (occurrence: None)
  Receive Date: 20100610
  Receipt Date: 20100602
  Transmission Date: 20101027
  Serious: Yes (Hospitalization)
  Sender: FDA-Public Use
  Company Number: B0653298A

PATIENT
  Sex: Female

DRUGS (6)
  1. VALTREX [Suspect]
     Indication: FACIAL PALSY
     Dosage: 3000MG PER DAY
     Route: 048
     Dates: start: 20100510, end: 20100512
  2. PREDONINE [Concomitant]
     Indication: FACIAL PALSY
     Dosage: 30MG PER DAY
     Route: 048
     Dates: start: 20100510, end: 20100514
  3. CYANOCOBALAMIN [Concomitant]
     Indication: FACIAL PALSY
     Dosage: 1500MCG PER DAY
     Route: 048
     Dates: start: 20100510, end: 20100520
  4. MUCOSTA [Concomitant]
     Indication: GASTRITIS PROPHYLAXIS
     Dosage: 300MG PER DAY
     Route: 048
     Dates: start: 20100510, end: 20100520
  5. ADETPHOS [Concomitant]
     Indication: FACIAL PALSY
     Dosage: 120MG PER DAY
     Route: 048
     Dates: start: 20100510, end: 20100512
  6. LIPITOR [Concomitant]
     Dosage: 10MG PER DAY
     Route: 048

REACTIONS (2)
  - DELIRIUM [None]
  - RENAL FAILURE ACUTE [None]
